FAERS Safety Report 19946555 (Version 1)
Quarter: 2021Q4

REPORT INFORMATION
  Report Type: Spontaneous
  Country: US (occurrence: US)
  Receive Date: 20211012
  Receipt Date: 20211012
  Transmission Date: 20220304
  Serious: No
  Sender: FDA-Public Use
  Company Number: US-GW PHARMA-202110USGW04882

PATIENT

DRUGS (1)
  1. EPIDIOLEX [Suspect]
     Active Substance: CANNABIDIOL
     Indication: Lennox-Gastaut syndrome
     Dosage: 24.15 MG/KG/DAY, 230 MILLIGRAM, BID
     Route: 048
     Dates: start: 201906

REACTIONS (2)
  - Urticaria [Unknown]
  - Prescribed overdose [Unknown]
